FAERS Safety Report 7712178-2 (Version None)
Quarter: 2011Q3

REPORT INFORMATION
  Report Type: 
  Country: None (occurrence: None)
  Receive Date: 20110826
  Receipt Date: 20110817
  Transmission Date: 20111222
  Serious: Yes (Hospitalization, Other)
  Sender: FDA-Public Use
  Company Number: US-ACTELION-A-US2011-50530

PATIENT

DRUGS (1)
  1. TRACLEER [Suspect]
     Indication: PULMONARY ARTERIAL HYPERTENSION
     Dosage: UNK
     Route: 048
     Dates: start: 20110523, end: 20110801

REACTIONS (5)
  - LIVER FUNCTION TEST ABNORMAL [None]
  - ATRIAL FIBRILLATION [None]
  - SWELLING [None]
  - OEDEMA [None]
  - ASTHMA [None]
